FAERS Safety Report 16599533 (Version 3)
Quarter: 2019Q4

REPORT INFORMATION
  Report Type: Report from Study
  Country: None (occurrence: CO)
  Receive Date: 20190720
  Receipt Date: 20191030
  Transmission Date: 20200122
  Serious: Yes (Other)
  Sender: FDA-Public Use
  Company Number: CO-ABBVIE-19K-036-2861163-00

PATIENT
  Age: 51 Year
  Sex: Male
  Weight: 83 kg

DRUGS (1)
  1. HUMIRA [Suspect]
     Active Substance: ADALIMUMAB
     Indication: ANKYLOSING SPONDYLITIS
     Route: 058
     Dates: start: 20180810

REACTIONS (11)
  - Blindness [Recovering/Resolving]
  - Pain in extremity [Recovering/Resolving]
  - Eye inflammation [Not Recovered/Not Resolved]
  - Arthralgia [Recovering/Resolving]
  - Back pain [Unknown]
  - Eye pain [Not Recovered/Not Resolved]
  - Weight increased [Unknown]
  - Therapeutic response shortened [Unknown]
  - Hypersensitivity [Not Recovered/Not Resolved]
  - Blood triglycerides abnormal [Unknown]
  - Rotator cuff syndrome [Unknown]

NARRATIVE: CASE EVENT DATE: 201905
